FAERS Safety Report 17289533 (Version 1)
Quarter: 2020Q1

REPORT INFORMATION
  Report Type: Spontaneous
  Country: BR (occurrence: BR)
  Receive Date: 20200120
  Receipt Date: 20200120
  Transmission Date: 20200409
  Serious: Yes (Life-Threatening, Hospitalization, Other)
  Sender: FDA-Public Use
  Company Number: BR-AMGEN-BRASP2020007131

PATIENT
  Age: 27 Year
  Sex: Female
  Weight: 87.2 kg

DRUGS (9)
  1. FOSAPREPITANT [Concomitant]
     Active Substance: FOSAPREPITANT
     Dosage: 150 MILLIGRAM (ADMINISTERED IN 30 MIN ON D1)
     Route: 042
     Dates: start: 20190926
  2. GRANULOKINE [Suspect]
     Active Substance: FILGRASTIM
     Indication: NEUTROPENIA
     Dosage: 600 MICROGRAM, QD
     Route: 065
     Dates: start: 20191005
  3. GEMCITABINE. [Suspect]
     Active Substance: GEMCITABINE
     Indication: NON-HODGKIN^S LYMPHOMA
     Dosage: 1000 MILLIGRAM/SQ. METER (1950 MG/DAY; ADMINISTERED IN 30 MIN ON D1 AND D8)
     Route: 042
     Dates: start: 20190926
  4. MABTHERA [Suspect]
     Active Substance: RITUXIMAB
     Indication: NON-HODGKIN^S LYMPHOMA
     Dosage: 375 MILLIGRAM/SQ. METER, (731 MG- ON D1) (500 MG/50ML 1 FAMP)
     Route: 042
     Dates: start: 20190926
  5. DEXAMETHASONE. [Suspect]
     Active Substance: DEXAMETHASONE
     Indication: NON-HODGKIN^S LYMPHOMA
     Dosage: 40 MILLIGRAM (ADMINISTERED IN 20MIN FROM D1 TO D4)
     Route: 042
     Dates: start: 20190926
  6. CISPLATIN. [Suspect]
     Active Substance: CISPLATIN
     Indication: NON-HODGKIN^S LYMPHOMA
     Dosage: 25 MILLIGRAM/SQ. METER, (48.8 MG/DAY; ADMINISTERED IN 60 MIN ON D1 TO D3)
     Route: 042
     Dates: start: 20190926
  7. TYLENOL [Concomitant]
     Active Substance: ACETAMINOPHEN
     Dosage: 750 MILLIGRAM (ON D1)
     Route: 048
     Dates: start: 20190926
  8. PALONOSETRON. [Concomitant]
     Active Substance: PALONOSETRON HYDROCHLORIDE
     Dosage: 0.25 MILLIGRAM (ADMINISTERED IN 1 MIN ON D1)
     Route: 042
     Dates: start: 20190926
  9. DIPHENHYDRAMINE. [Concomitant]
     Active Substance: DIPHENHYDRAMINE
     Dosage: 25 MILLIGRAM (ADMINISTERED WITHIN 20 MIN ON D1)
     Route: 042
     Dates: start: 20190926

REACTIONS (2)
  - Thrombocytopenia [Recovered/Resolved]
  - Neutropenia [Recovered/Resolved]

NARRATIVE: CASE EVENT DATE: 20191005
